FAERS Safety Report 14607573 (Version 2)
Quarter: 2018Q1

REPORT INFORMATION
  Report Type: Spontaneous
  Country: JP (occurrence: JP)
  Receive Date: 20180307
  Receipt Date: 20180327
  Transmission Date: 20180509
  Serious: Yes (Other)
  Sender: FDA-Public Use
  Company Number: JP-JT-EVA201800525KERYXP-001

PATIENT
  Age: 8 Decade
  Sex: Female

DRUGS (2)
  1. KREMEZIN [Concomitant]
     Active Substance: ACTIVATED CHARCOAL
     Dosage: UNK
     Route: 048
  2. RIONA [Suspect]
     Active Substance: FERRIC CITRATE ANHYDROUS
     Dosage: UNK
     Route: 048

REACTIONS (1)
  - Colon cancer [Unknown]

NARRATIVE: CASE EVENT DATE: 201801
